FAERS Safety Report 22539822 (Version 1)
Quarter: 2023Q2

REPORT INFORMATION
  Report Type: Spontaneous
  Country: FR (occurrence: FR)
  Receive Date: 20230609
  Receipt Date: 20230609
  Transmission Date: 20230722
  Serious: Yes (Life-Threatening, Hospitalization)
  Sender: FDA-Public Use
  Company Number: FR-ROCHE-3365047

PATIENT
  Age: 46 Year
  Sex: Female

DRUGS (17)
  1. RIVOTRIL [Suspect]
     Active Substance: CLONAZEPAM
     Indication: Product used for unknown indication
     Dosage: DOUBLE-SCORED TABLET
     Route: 065
     Dates: start: 20230507
  2. ZONEGRAN [Suspect]
     Active Substance: ZONISAMIDE
     Indication: Product used for unknown indication
     Route: 065
     Dates: start: 20230507
  3. ALFUZOSIN [Suspect]
     Active Substance: ALFUZOSIN
     Indication: Product used for unknown indication
     Dosage: SUSTAINED EXTENDED-RELEASE TABLET
     Route: 065
     Dates: start: 20230507
  4. DAFALGAN [Suspect]
     Active Substance: ACETAMINOPHEN
     Indication: Product used for unknown indication
     Route: 065
     Dates: start: 20230507
  5. BUPRENORPHINE HYDROCHLORIDE [Suspect]
     Active Substance: BUPRENORPHINE HYDROCHLORIDE
     Indication: Product used for unknown indication
     Route: 065
     Dates: start: 20230507
  6. TEGRETOL [Suspect]
     Active Substance: CARBAMAZEPINE
     Indication: Product used for unknown indication
     Route: 065
     Dates: start: 20230507
  7. VIMPAT [Suspect]
     Active Substance: LACOSAMIDE
     Indication: Product used for unknown indication
     Route: 065
     Dates: start: 20230507
  8. VALPROATE SODIUM [Concomitant]
     Active Substance: VALPROATE SODIUM
     Dosage: BID, 1-0-1
  9. CYAMEMAZINE [Concomitant]
     Active Substance: CYAMEMAZINE
     Dosage: 2-0-2, BID
  10. EBASTINE [Concomitant]
     Active Substance: EBASTINE
     Dosage: 0-1-0
  11. LEVOCETIRIZINE DIHYDROCHLORIDE [Concomitant]
     Active Substance: LEVOCETIRIZINE DIHYDROCHLORIDE
     Dosage: 0-0-1
  12. POLYETHYLENE GLYCOL 4000 [Concomitant]
     Active Substance: POLYETHYLENE GLYCOL 4000
     Dosage: BID, 2-0-2
  13. RISPERDAL [Concomitant]
     Active Substance: RISPERIDONE
     Dosage: 0-0-1.5MG
  14. ASCORBIC ACID\FERROUS SULFATE [Concomitant]
     Active Substance: ASCORBIC ACID\FERROUS SULFATE
     Dosage: 1-0-0
  15. MEFENAMIC ACID [Concomitant]
     Active Substance: MEFENAMIC ACID
     Indication: Menstrual disorder
     Dosage: TID, 1-1-1
  16. SPASFON [Concomitant]
     Indication: Menstrual disorder
     Dosage: TID, 1-1-1
  17. ESOXX [Concomitant]
     Dosage: TID, 1-1-1

REACTIONS (4)
  - Coma [Unknown]
  - Pneumonia aspiration [Unknown]
  - Product administration error [Unknown]
  - Poisoning [Unknown]

NARRATIVE: CASE EVENT DATE: 20230507
